FAERS Safety Report 7000098-0 (Version None)
Quarter: 2010Q3

REPORT INFORMATION
  Report Type: 
  Country: None (occurrence: None)
  Receive Date: 20100920
  Receipt Date: 20091209
  Transmission Date: 20110219
  Serious: Yes (Other)
  Sender: FDA-Public Use
  Company Number: US-ASTRAZENECA-2009UW20852

PATIENT
  Age: 20031 Day
  Sex: Female
  Weight: 81.2 kg

DRUGS (8)
  1. SEROQUEL [Suspect]
     Indication: BIPOLAR I DISORDER
     Route: 048
     Dates: start: 20010101
  2. SEROQUEL [Suspect]
     Indication: SCHIZOPHRENIA
     Route: 048
     Dates: start: 20010101
  3. ACTOS [Concomitant]
     Indication: TYPE 2 DIABETES MELLITUS
     Dates: start: 20020101
  4. HALDOL [Concomitant]
     Dates: start: 19890101
  5. NAVANE [Concomitant]
  6. THORAZINE [Concomitant]
     Dates: start: 19890101
  7. ZYPREXA [Concomitant]
     Dates: start: 19980101
  8. SYMBYAX [Concomitant]
     Dates: start: 19980101

REACTIONS (2)
  - DIABETIC COMA [None]
  - TYPE 2 DIABETES MELLITUS [None]
